FAERS Safety Report 11211643 (Version 1)
Quarter: 2015Q2

REPORT INFORMATION
  Report Type: Spontaneous
  Country: US (occurrence: US)
  Receive Date: 20150623
  Receipt Date: 20150623
  Transmission Date: 20150821
  Serious: Yes (Other)
  Sender: FDA-Public Use
  Company Number: US-ACTAVIS-2015-12017

PATIENT
  Age: 28 Year
  Sex: Female

DRUGS (1)
  1. FENTANYL-25 (WATSON LABORATORIES) [Suspect]
     Active Substance: FENTANYL
     Indication: BACK PAIN
     Dosage: 25 MCG, EVERY THREE DAYS
     Route: 062
     Dates: end: 20150606

REACTIONS (10)
  - Nausea [Recovering/Resolving]
  - Sunburn [Recovering/Resolving]
  - Burns second degree [Recovering/Resolving]
  - Vomiting [Recovering/Resolving]
  - Dizziness [Recovering/Resolving]
  - Somnolence [Recovering/Resolving]
  - Blister [Recovering/Resolving]
  - Toxicity to various agents [Recovering/Resolving]
  - Dermal absorption increased [Recovering/Resolving]
  - Chills [Recovering/Resolving]

NARRATIVE: CASE EVENT DATE: 20150606
